FAERS Safety Report 8955761 (Version 1)
Quarter: 2012Q4

REPORT INFORMATION
  Report Type: 
  Country: US (occurrence: US)
  Receive Date: 20121210
  Receipt Date: 20121210
  Transmission Date: 20130627
  Serious: Yes (Disabling)
  Sender: FDA-Public Use
  Company Number: US-MILLENNIUM PHARMACEUTICALS, INC.-2012-08677

PATIENT
  Age: 66 Year
  Sex: Male

DRUGS (4)
  1. VELCADE [Suspect]
     Indication: MULTIPLE MYELOMA
     Dosage: UNK, Cyclic
  2. CYTOXAN [Suspect]
     Indication: MULTIPLE MYELOMA
  3. DECADRON                           /00016001/ [Suspect]
     Indication: MULTIPLE MYELOMA
  4. ACYCLOVIR                          /00587301/ [Concomitant]
     Indication: PRODUCT USED FOR UNKNOWN INDICATION

REACTIONS (3)
  - Back disorder [Unknown]
  - Neuropathy peripheral [Unknown]
  - Pyrexia [Unknown]
